FAERS Safety Report 4662811-7 (Version None)
Quarter: 2005Q2

REPORT INFORMATION
  Report Type: 
  Country: None (occurrence: None)
  Receive Date: 20050512
  Receipt Date: 20050422
  Transmission Date: 20051028
  Serious: Yes (Hospitalization)
  Sender: FDA-Public Use
  Company Number: USA050495321

PATIENT
  Age: 74 Year
  Sex: Female

DRUGS (2)
  1. FORTEO [Suspect]
     Indication: OSTEOPOROSIS
     Dosage: 20 UG DAY
     Dates: start: 20050301
  2. PREDNISONE [Concomitant]

REACTIONS (4)
  - DYSPNOEA [None]
  - FALL [None]
  - HAEMATOCRIT DECREASED [None]
  - HAEMORRHOIDAL HAEMORRHAGE [None]
